FAERS Safety Report 7653807-1 (Version None)
Quarter: 2011Q3

REPORT INFORMATION
  Report Type: 
  Country: None (occurrence: None)
  Receive Date: 20110803
  Receipt Date: 20110802
  Transmission Date: 20111222
  Serious: Yes (Hospitalization)
  Sender: FDA-Public Use
  Company Number: DE-BRISTOL-MYERS SQUIBB COMPANY-15861073

PATIENT
  Age: 42 Year
  Sex: Female

DRUGS (8)
  1. LORAZEPAM [Concomitant]
     Route: 048
     Dates: start: 20110117
  2. MIRTAZAPINE [Concomitant]
     Route: 048
  3. PREGABALIN [Concomitant]
     Dosage: 1DF=UPTO 300MG
     Dates: start: 20110315
  4. ESCITALOPRAM [Concomitant]
     Route: 048
  5. HYPNOREX [Concomitant]
     Route: 048
     Dates: start: 20110124
  6. ZOPICLON [Concomitant]
     Dates: start: 20110126
  7. VALDOXAN [Concomitant]
     Route: 048
     Dates: start: 20110124
  8. ABILIFY [Suspect]
     Dosage: TAB
     Route: 048
     Dates: start: 20110404, end: 20110407

REACTIONS (1)
  - ASTHMA [None]
